FAERS Safety Report 8544263-X (Version None)
Quarter: 2012Q3

REPORT INFORMATION
  Report Type: 
  Country: None (occurrence: None)
  Receive Date: 20120719
  Receipt Date: 20120719
  Transmission Date: 20120928
  Serious: No
  Sender: FDA-Public Use
  Company Number: None

PATIENT
  Age: 37 Year
  Sex: Female
  Weight: 79.3795 kg

DRUGS (1)
  1. VIIBRYD [Suspect]
     Indication: DEPRESSION
     Dosage: 40 MG DAILY PO  2 1/2 MONTHS
     Route: 048
     Dates: start: 20120415, end: 20120702

REACTIONS (8)
  - WEIGHT INCREASED [None]
  - EMOTIONAL DISORDER [None]
  - ROAD TRAFFIC ACCIDENT [None]
  - OEDEMA PERIPHERAL [None]
  - MANIA [None]
  - INSOMNIA [None]
  - LOSS OF CONSCIOUSNESS [None]
  - TOXICITY TO VARIOUS AGENTS [None]
